FAERS Safety Report 10370478 (Version 1)
Quarter: 2014Q3

REPORT INFORMATION
  Report Type: Spontaneous
  Country: US (occurrence: US)
  Receive Date: 20140808
  Receipt Date: 20140808
  Transmission Date: 20150326
  Serious: Yes (Hospitalization)
  Sender: FDA-Public Use
  Company Number: 2014SP004565

PATIENT
  Age: 31 Year
  Sex: Female
  Weight: 74.05 kg

DRUGS (21)
  1. OXYCODONE AND ACETAMINOPHEN [Concomitant]
     Active Substance: ACETAMINOPHEN\OXYCODONE\OXYCODONE HYDROCHLORIDE
     Route: 048
     Dates: start: 201307
  2. DEXAMETHASONE. [Concomitant]
     Active Substance: DEXAMETHASONE
     Dates: start: 20140623
  3. FLUOROURACIL. [Suspect]
     Active Substance: FLUOROURACIL
  4. TARCEVA [Suspect]
     Active Substance: ERLOTINIB HYDROCHLORIDE
     Indication: SQUAMOUS CELL CARCINOMA
     Route: 048
  5. MAGIC MIX [Concomitant]
     Dates: start: 20140407
  6. SERTRALINE [Concomitant]
     Active Substance: SERTRALINE HYDROCHLORIDE
     Route: 048
     Dates: start: 20140512, end: 20140727
  7. XANAX [Concomitant]
     Active Substance: ALPRAZOLAM
     Route: 048
     Dates: start: 20140606, end: 20140727
  8. GABAPENTIN. [Concomitant]
     Active Substance: GABAPENTIN
     Route: 048
     Dates: start: 20140606
  9. TEMSIROLIMUS [Suspect]
     Active Substance: TEMSIROLIMUS
     Indication: SQUAMOUS CELL CARCINOMA
     Route: 042
  10. ONDANSETRON [Concomitant]
     Active Substance: ONDANSETRON
     Route: 048
     Dates: start: 20140312
  11. TRIAMCINOLONE [Concomitant]
     Active Substance: TRIAMCINOLONE
     Route: 061
     Dates: start: 20140310
  12. DESONIDE. [Concomitant]
     Active Substance: DESONIDE
     Route: 061
     Dates: start: 20140408
  13. OXYCODONE [Concomitant]
     Active Substance: OXYCODONE
     Route: 048
     Dates: start: 20140623
  14. COLACE [Concomitant]
     Active Substance: DOCUSATE SODIUM
     Route: 048
     Dates: start: 20140704
  15. OXYCONTIN [Concomitant]
     Active Substance: OXYCODONE HYDROCHLORIDE
     Route: 048
     Dates: start: 20140607
  16. OXALIPLATIN. [Suspect]
     Active Substance: OXALIPLATIN
     Indication: OFF LABEL USE
  17. FOLINIC ACID [Suspect]
     Active Substance: LEUCOVORIN
     Indication: OFF LABEL USE
  18. XANAX [Concomitant]
     Active Substance: ALPRAZOLAM
     Route: 048
     Dates: start: 20140728
  19. TYLENOL [Concomitant]
     Active Substance: ACETAMINOPHEN
     Route: 048
     Dates: start: 20140309
  20. PROCHLORPERAZINE. [Concomitant]
     Active Substance: PROCHLORPERAZINE
     Route: 048
     Dates: start: 20140324
  21. SERTRALINE [Concomitant]
     Active Substance: SERTRALINE HYDROCHLORIDE
     Route: 048
     Dates: start: 20140728

REACTIONS (4)
  - Abdominal pain [Unknown]
  - Nausea [Unknown]
  - Musculoskeletal pain [Unknown]
  - Dehydration [Unknown]

NARRATIVE: CASE EVENT DATE: 20140731
